FAERS Safety Report 11520668 (Version 1)
Quarter: 2015Q3

REPORT INFORMATION
  Report Type: Spontaneous
  Country: US (occurrence: None)
  Receive Date: 20150917
  Receipt Date: 20150917
  Transmission Date: 20151125
  Serious: No
  Sender: FDA-Public Use
  Company Number: None

PATIENT
  Age: 62 Year

DRUGS (18)
  1. METHOCARBAM [Concomitant]
  2. PRISTIQ [Concomitant]
  3. RITALIN LA [Concomitant]
  4. IMPRAM HCL [Concomitant]
  5. LEXAPRO [Concomitant]
  6. PROPO-N/APAP [Concomitant]
  7. RIBAPAK [Concomitant]
  8. BISACODYL [Concomitant]
  9. OMEPRAZOLE [Concomitant]
  10. RIBAVIRIN [Concomitant]
  11. HARVONI [Suspect]
     Active Substance: LEDIPASVIR\SOFOSBUVIR
     Indication: CHRONIC HEPATITIS C
     Dosage: 90-400MG
     Route: 048
     Dates: start: 20150603
  12. FLUOXETINE [Concomitant]
  13. MICARDIS [Concomitant]
  14. PEGASYS [Concomitant]
  15. OLUX-E [Concomitant]
  16. NEUPOGEN [Concomitant]
  17. NULYTELY [Concomitant]
  18. PROZAC [Concomitant]

REACTIONS (3)
  - Nausea [None]
  - Fatigue [None]
  - Headache [None]

NARRATIVE: CASE EVENT DATE: 20150601
